FAERS Safety Report 10174836 (Version 2)
Quarter: 2014Q2

REPORT INFORMATION
  Report Type: Spontaneous
  Country: CN (occurrence: CN)
  Receive Date: 20140515
  Receipt Date: 20140515
  Transmission Date: 20141212
  Serious: Yes (Other)
  Sender: FDA-Public Use
  Company Number: PHHY2013CN090330

PATIENT
  Age: 63 Year
  Sex: Female

DRUGS (2)
  1. DIOVAN [Suspect]
     Indication: HYPERTENSION
     Dosage: 1 DF (80 MG), PER DAY IN THE MORNING
     Route: 048
     Dates: start: 20130805
  2. ADALAT [Concomitant]
     Indication: HYPERTENSION
     Dosage: 1 DF, PER DAY IN THE EVENING
     Route: 048

REACTIONS (3)
  - Blood pressure increased [Recovering/Resolving]
  - Drug ineffective [Recovering/Resolving]
  - Blood pressure inadequately controlled [Recovering/Resolving]
